FAERS Safety Report 20111983 (Version 1)
Quarter: 2021Q4

REPORT INFORMATION
  Report Type: Spontaneous
  Country: GB (occurrence: GB)
  Receive Date: 20211125
  Receipt Date: 20211125
  Transmission Date: 20220303
  Serious: Yes (Other)
  Sender: FDA-Public Use
  Company Number: None

PATIENT
  Age: 37 Year
  Sex: Female
  Weight: 65 kg

DRUGS (1)
  1. MIRTAZAPINE [Suspect]
     Active Substance: MIRTAZAPINE
     Indication: Anxiety
     Dosage: 5 MG A DAY
     Route: 048
     Dates: start: 20171010

REACTIONS (2)
  - Adverse drug reaction [Not Recovered/Not Resolved]
  - Adverse drug reaction [Not Recovered/Not Resolved]
